FAERS Safety Report 12529923 (Version 1)
Quarter: 2016Q3

REPORT INFORMATION
  Report Type: Spontaneous
  Country: US (occurrence: None)
  Receive Date: 20160705
  Receipt Date: 20160705
  Transmission Date: 20161109
  Serious: Yes (Disabling)
  Sender: FDA-Public Use
  Company Number: None

PATIENT
  Age: 56 Year
  Sex: Female
  Weight: 79.38 kg

DRUGS (5)
  1. CHEMO [Concomitant]
     Active Substance: UNSPECIFIED INGREDIENT
  2. TYLENOL [Concomitant]
     Active Substance: ACETAMINOPHEN
  3. NEULASTA [Suspect]
     Active Substance: PEGFILGRASTIM
  4. VITAMIN D3 [Concomitant]
     Active Substance: CHOLECALCIFEROL
  5. AVO BLADDER HEALTH [Concomitant]

REACTIONS (5)
  - Injection site pain [None]
  - Nerve compression [None]
  - Middle insomnia [None]
  - Myalgia [None]
  - Device issue [None]

NARRATIVE: CASE EVENT DATE: 20160121
